FAERS Safety Report 4494121-5 (Version None)
Quarter: 2004Q4

REPORT INFORMATION
  Report Type: 
  Country: None (occurrence: None)
  Receive Date: 20041105
  Receipt Date: 20041028
  Transmission Date: 20050328
  Serious: Yes (Disabling)
  Sender: FDA-Public Use
  Company Number: US-MERCK-0410USA04275

PATIENT
  Age: 52 Year
  Sex: Female

DRUGS (5)
  1. VIOXX [Suspect]
     Indication: OSTEOARTHRITIS
     Route: 048
     Dates: start: 20020101, end: 20040901
  2. [THERAPY UNSPECIFIED] [Concomitant]
     Route: 065
  3. MOBIC [Concomitant]
     Route: 065
  4. ACIPHEX [Concomitant]
     Route: 065
  5. AMBIEN [Concomitant]
     Route: 065

REACTIONS (1)
  - HEADACHE [None]
